FAERS Safety Report 8041564-9 (Version None)
Quarter: 2012Q1

REPORT INFORMATION
  Report Type: 
  Country: None (occurrence: None)
  Receive Date: 20120112
  Receipt Date: 20120104
  Transmission Date: 20120608
  Serious: Yes (Other)
  Sender: FDA-Public Use
  Company Number: US-JNJFOC-20111106271

PATIENT
  Sex: Male

DRUGS (4)
  1. DEPAKOTE ER [Suspect]
     Route: 065
  2. PROZAC [Suspect]
     Indication: DEPRESSION
     Route: 065
     Dates: start: 20110907
  3. INVEGA SUSTENNA [Suspect]
     Indication: PRODUCT USED FOR UNKNOWN INDICATION
     Route: 030
     Dates: start: 20110510, end: 20111004
  4. DEPAKOTE ER [Suspect]
     Indication: DRUG THERAPY
     Route: 065
     Dates: start: 20100513

REACTIONS (1)
  - PARKINSONISM [None]
